FAERS Safety Report 8621855-0 (Version None)
Quarter: 2012Q3

REPORT INFORMATION
  Report Type: 
  Country: None (occurrence: None)
  Receive Date: 20120825
  Receipt Date: 20120814
  Transmission Date: 20120928
  Serious: Yes (Other)
  Sender: FDA-Public Use
  Company Number: US-009507513-1208USA006715

PATIENT

DRUGS (5)
  1. GEMFIBROZIL [Concomitant]
  2. SAPHRIS [Suspect]
     Indication: BIPOLAR DISORDER
     Dosage: 2 DF, QD
     Route: 048
     Dates: start: 20120531, end: 20120605
  3. ALLOPURINOL [Concomitant]
  4. COUGH, COLD, AND FLU THERAPIES (UNSPECIFIED) [Concomitant]
  5. BACTRIM [Concomitant]

REACTIONS (4)
  - INCORRECT ROUTE OF DRUG ADMINISTRATION [None]
  - LISTLESS [None]
  - DYSPNOEA [None]
  - FATIGUE [None]
